FAERS Safety Report 11376040 (Version 1)
Quarter: 2015Q3

REPORT INFORMATION
  Report Type: Spontaneous
  Country: US (occurrence: US)
  Receive Date: 20150813
  Receipt Date: 20150813
  Transmission Date: 20151125
  Serious: No
  Sender: FDA-Public Use
  Company Number: US-BAYER-2015-400007

PATIENT
  Age: 70 Year
  Sex: Male

DRUGS (3)
  1. BABY ASPIRIN [Concomitant]
     Active Substance: ASPIRIN
  2. CLARITIN [Suspect]
     Active Substance: LORATADINE
     Dosage: UNK
  3. CLARITIN [Suspect]
     Active Substance: LORATADINE
     Dosage: UNK
     Route: 048

REACTIONS (1)
  - Inappropriate schedule of drug administration [None]

NARRATIVE: CASE EVENT DATE: 20150809
